FAERS Safety Report 6280366-0 (Version None)
Quarter: 2009Q3

REPORT INFORMATION
  Report Type: 
  Country: None (occurrence: None)
  Receive Date: 20090724
  Receipt Date: 20090717
  Transmission Date: 20100115
  Serious: Yes (Hospitalization)
  Sender: FDA-Public Use
  Company Number: US-BIOGENIDEC-2009BI022590

PATIENT
  Age: 52 Year
  Sex: Female

DRUGS (2)
  1. AVONEX [Suspect]
     Indication: MULTIPLE SCLEROSIS
     Route: 030
     Dates: start: 19990101, end: 20061101
  2. AVONEX [Suspect]
     Route: 030
     Dates: start: 20070501

REACTIONS (5)
  - EAR INFECTION [None]
  - EYE INFECTION [None]
  - HEMIPARESIS [None]
  - HYPOAESTHESIA [None]
  - PARAESTHESIA [None]
